FAERS Safety Report 8579791-4 (Version None)
Quarter: 2012Q3

REPORT INFORMATION
  Report Type: 
  Country: None (occurrence: None)
  Receive Date: 20120808
  Receipt Date: 20120801
  Transmission Date: 20120928
  Serious: Yes (Other)
  Sender: FDA-Public Use
  Company Number: US-VERTEX PHARMACEUTICALS INC.-AE-2012-006853

PATIENT
  Sex: Male
  Weight: 96.62 kg

DRUGS (5)
  1. HYDROCHLOROTHIAZIDE [Concomitant]
     Route: 048
  2. METFORMIN HYDROCHLORIDE [Concomitant]
  3. INCIVEK [Suspect]
     Indication: HEPATITIS C
     Route: 048
     Dates: start: 20120427
  4. RIBAVIRIN [Concomitant]
     Indication: HEPATITIS C
     Route: 048
     Dates: start: 20120427
  5. PEGASYS [Concomitant]
     Indication: HEPATITIS C
     Dates: start: 20120427

REACTIONS (12)
  - HYPOAESTHESIA [None]
  - NAUSEA [None]
  - MUSCLE SPASMS [None]
  - FATIGUE [None]
  - CHILLS [None]
  - DYSGEUSIA [None]
  - BLOOD GLUCOSE INCREASED [None]
  - DYSPNOEA [None]
  - RASH [None]
  - DECREASED APPETITE [None]
  - VISION BLURRED [None]
  - PRURITUS [None]
